FAERS Safety Report 5157453-3 (Version None)
Quarter: 2006Q4

REPORT INFORMATION
  Report Type: 
  Country: None (occurrence: None)
  Receive Date: 20061116
  Receipt Date: 20060502
  Transmission Date: 20070319
  Serious: No
  Sender: FDA-Public Use
  Company Number: IND-AE-06-DEL-002

PATIENT
  Age: 61 Year
  Sex: Male
  Weight: 90.7194 kg

DRUGS (3)
  1. DELATESTRYL [Suspect]
     Indication: ERECTILE DYSFUNCTION
     Dosage: 1 ML Q 2 WEEKS - IM
     Route: 030
  2. ZOCOR [Concomitant]
  3. ATENOLOL [Concomitant]

REACTIONS (2)
  - DRUG INEFFECTIVE [None]
  - PHARMACEUTICAL PRODUCT COMPLAINT [None]
